FAERS Safety Report 10314345 (Version 1)
Quarter: 2014Q3

REPORT INFORMATION
  Report Type: Spontaneous
  Country: IT (occurrence: IT)
  Receive Date: 20140718
  Receipt Date: 20140718
  Transmission Date: 20150326
  Serious: Yes (Congenital Anomaly)
  Sender: FDA-Public Use
  Company Number: IT-GLAXOSMITHKLINE-B1015557A

PATIENT
  Sex: Female
  Weight: 2.3 kg

DRUGS (2)
  1. ACYCLOVIR. [Suspect]
     Active Substance: ACYCLOVIR
     Indication: CONGENITAL HERPES SIMPLEX INFECTION
     Dosage: 180MG PER DAY
     Route: 042
  2. ACYCLOVIR. [Suspect]
     Active Substance: ACYCLOVIR
     Dosage: 400MG TWICE PER DAY
     Route: 064

REACTIONS (8)
  - Live birth [Unknown]
  - Skin lesion [Unknown]
  - Retinal scar [Unknown]
  - Nervous system disorder [Unknown]
  - Foetal exposure during pregnancy [Unknown]
  - Thrombocytopenia [Unknown]
  - Blister [Unknown]
  - Congenital herpes simplex infection [Unknown]
